FAERS Safety Report 5164499-8 (Version None)
Quarter: 2006Q4

REPORT INFORMATION
  Report Type: 
  Country: None (occurrence: None)
  Receive Date: 20061205
  Receipt Date: 20061026
  Transmission Date: 20070319
  Serious: Yes (Hospitalization)
  Sender: FDA-Public Use
  Company Number: PHRM2006FR02951

PATIENT
  Age: 70 Year
  Sex: Male

DRUGS (1)
  1. GLEEVEC [Suspect]
     Indication: GASTROINTESTINAL STROMAL TUMOUR
     Dosage: UNK, UNK
     Route: 048
     Dates: start: 20060406, end: 20061025

REACTIONS (5)
  - APHTHOUS STOMATITIS [None]
  - BIOPSY SKIN ABNORMAL [None]
  - DERMATITIS PSORIASIFORM [None]
  - ECZEMA [None]
  - PARAPSORIASIS [None]
